FAERS Safety Report 6078471-7 (Version None)
Quarter: 2009Q1

REPORT INFORMATION
  Report Type: 
  Country: None (occurrence: None)
  Receive Date: 20090212
  Receipt Date: 20090212
  Transmission Date: 20090719
  Serious: Yes (Other)
  Sender: FDA-Public Use
  Company Number: None

PATIENT
  Age: 56 Year
  Sex: Female
  Weight: 62.5964 kg

DRUGS (2)
  1. ALLI [Suspect]
     Indication: OVERWEIGHT
     Dosage: 1 CAPSULE 3 X DAY PO
     Route: 048
     Dates: start: 20070628, end: 20070912
  2. ALLI [Suspect]
     Indication: OVERWEIGHT
     Dosage: 1 CAPSULE 3 X DAY PO
     Route: 048
     Dates: start: 20090101, end: 20090210

REACTIONS (2)
  - BODY FAT DISORDER [None]
  - BRONCHITIS [None]
